FAERS Safety Report 6958701 (Version 13)
Quarter: 2012Q4

REPORT INFORMATION
  Report Type: Report from Study
  Country: JP (occurrence: JP)
  Receive Date: 20090402
  Receipt Date: 20121231
  Transmission Date: 20130627
  Serious: Yes (Death, Life-Threatening, Hospitalization, Other)
  Sender: FDA-Public Use
  Company Number: JP-BRISTOL-MYERS SQUIBB COMPANY-14563340

PATIENT
  Age: 53 Year
  Sex: Female

DRUGS (34)
  1. SPRYCEL (PH+ALL) TABS [Suspect]
     Indication: ACUTE LYMPHOCYTIC LEUKAEMIA
     Dosage: Initiated on 11Mar09
     Route: 048
     Dates: start: 20090311, end: 20090321
  2. PROGRAF [Suspect]
     Indication: PROPHYLAXIS AGAINST GRAFT VERSUS HOST DISEASE
     Dosage: Prograf granules
11-17Mar09 0.2g/D
19-20Mar09 0.1g/D
20-21Mar09 0.2g/D
     Route: 048
     Dates: start: 20090311, end: 20090321
  3. VFEND [Concomitant]
     Indication: PROPHYLAXIS
     Dosage: Taken from 11Mar2009-17Mar2009
19Mar2009-21Mar2009
     Route: 048
     Dates: start: 20090311, end: 20090321
  4. GASTER [Concomitant]
     Indication: GASTROOESOPHAGEAL REFLUX DISEASE
     Dosage: Taken from 11Mar2009-17Mar2009
19Mar2009-21Mar2009
     Route: 048
     Dates: start: 20090311, end: 20090319
  5. CRAVIT [Concomitant]
     Indication: PROPHYLAXIS
     Dosage: taken from 11Mar2009-17Mar2009
19Mar2009-21Mar2009
Tab
     Route: 048
     Dates: start: 20090311, end: 20090321
  6. BAKTAR [Concomitant]
     Indication: PROPHYLAXIS
     Dosage: Taken on 12Mar2009, 16Mar2009, 19Mar2009
     Route: 048
     Dates: start: 20090312, end: 20090319
  7. LENDORMIN [Concomitant]
     Indication: INSOMNIA
     Dosage: Taken from 11Mar2009-17Mar2009
19Mar2009-21Mar2009
     Route: 048
     Dates: start: 20090311, end: 20090321
  8. DAONIL [Concomitant]
     Indication: DIABETES MELLITUS
     Route: 048
     Dates: start: 20090311, end: 20090317
  9. PREDNISOLONE [Concomitant]
     Indication: PROPHYLAXIS AGAINST GRAFT VERSUS HOST DISEASE
     Route: 048
     Dates: start: 20090311, end: 20090317
  10. EUGLUCON [Concomitant]
     Indication: DIABETES MELLITUS
     Dosage: Taken from 16Mar2009-17Mar2009
19Mar2009-21Mar2009
     Route: 048
     Dates: start: 20090316, end: 20090321
  11. AZUNOL [Concomitant]
     Indication: PHARYNGITIS
     Dosage: Gargle liquid
     Dates: start: 20120319
  12. PASTARON [Concomitant]
     Indication: ECZEMA
     Route: 062
     Dates: start: 20090316
  13. XYLOCAINE [Concomitant]
     Indication: LOCAL ANAESTHESIA
     Route: 061
     Dates: start: 20090319
  14. LASIX [Concomitant]
     Indication: OEDEMA
     Route: 042
     Dates: start: 20090316, end: 20090324
  15. VITAMEDIN [Concomitant]
     Dosage: 1DF=1 A/D
Form:Inj
     Route: 042
     Dates: start: 20090324, end: 20090324
  16. HOKUNALIN [Concomitant]
     Indication: ASTHMA
     Dates: start: 20090319, end: 20090321
  17. ALOSITOL [Concomitant]
     Indication: HYPERURICAEMIA
     Route: 048
     Dates: start: 20090317, end: 20090321
  18. POTASSIUM CHLORIDE [Concomitant]
     Indication: HYPOKALAEMIA
     Dosage: 1 df= 20mEq/20ml * 1 kit
     Route: 042
     Dates: start: 20090319, end: 20090321
  19. SOLDEM 3A [Concomitant]
     Indication: FLUID REPLACEMENT
     Dosage: Soldem 1 500ml*1 pack17mar09,18-19 mar09. 20-24Mar09
     Route: 042
     Dates: start: 20090317, end: 20090324
  20. LACTEC [Concomitant]
     Indication: FLUID REPLACEMENT
     Dosage: 1 df= 500ml*1 pack
     Route: 042
     Dates: start: 20090316, end: 20090324
  21. SOLITA-T [Concomitant]
     Indication: FLUID REPLACEMENT
     Route: 042
     Dates: start: 20090316, end: 20090317
  22. PASTARON [Concomitant]
     Indication: ECZEMA
     Dates: start: 20090316
  23. FIRSTCIN [Concomitant]
  24. NORMAL SALINE [Concomitant]
     Indication: FLUID REPLACEMENT
     Route: 042
     Dates: start: 20090321, end: 20090324
  25. ADONA [Concomitant]
  26. CIPROXAN [Concomitant]
     Indication: PNEUMONIA
     Route: 042
     Dates: start: 20090324, end: 20090324
  27. VITAMEDIN [Concomitant]
     Indication: HYPOVITAMINOSIS
     Route: 042
     Dates: start: 20090324, end: 20090324
  28. DEXTROSE 5% [Concomitant]
     Indication: FLUID REPLACEMENT
     Dosage: 1 df= 500ml * 2 packs
     Route: 042
     Dates: start: 20090324, end: 20090324
  29. BACTRAMIN [Concomitant]
     Indication: PNEUMONIA
     Dosage: 1 df= 80mg/5ml * 3 amp
     Dates: start: 20090324, end: 20090324
  30. SOLU-MEDROL [Concomitant]
     Dosage: 500mg on 24Mar09
     Route: 042
     Dates: start: 20090323, end: 20090324
  31. PREDOPA [Concomitant]
     Indication: HYPOTENSION
     Dosage: 1 df= 600m/200ml*1pk
     Route: 042
     Dates: start: 20090322, end: 20090322
  32. MAGNESIUM SULFATE [Concomitant]
     Indication: HYPOMAGNESAEMIA
     Dosage: 1 df= 20meq/20ml*1amp
     Route: 042
     Dates: start: 20090322, end: 20090322
  33. CRAVIT [Concomitant]
     Indication: PNEUMONIA
  34. NOVOLIN R [Concomitant]
     Indication: DIABETES MELLITUS

REACTIONS (12)
  - Pulmonary haemorrhage [Fatal]
  - Interstitial lung disease [Fatal]
  - Respiratory disorder [Not Recovered/Not Resolved]
  - Thrombotic microangiopathy [Not Recovered/Not Resolved]
  - Haematuria [Not Recovered/Not Resolved]
  - Infection [Unknown]
  - Platelet count decreased [Not Recovered/Not Resolved]
  - Hepatic function abnormal [Recovering/Resolving]
  - Pleural effusion [Recovering/Resolving]
  - Chronic graft versus host disease [Not Recovered/Not Resolved]
  - Anaemia [Not Recovered/Not Resolved]
  - Lymphocyte count decreased [Not Recovered/Not Resolved]
